FAERS Safety Report 16647913 (Version 3)
Quarter: 2020Q1

REPORT INFORMATION
  Report Type: Spontaneous
  Country: DE (occurrence: DE)
  Receive Date: 20190730
  Receipt Date: 20200114
  Transmission Date: 20200409
  Serious: Yes (Hospitalization, Other)
  Sender: FDA-Public Use
  Company Number: DE-UCBSA-2019030143

PATIENT
  Age: 60 Year
  Sex: Female
  Weight: 75 kg

DRUGS (4)
  1. CIMZIA [Suspect]
     Active Substance: CERTOLIZUMAB PEGOL
     Dosage: UNK, EVERY 17-21 DAYS
     Dates: start: 201902
  2. LEFLUNOMID [Concomitant]
     Active Substance: LEFLUNOMIDE
     Indication: PNEUMOCYSTIS JIROVECII PNEUMONIA
     Dosage: UNK, ONCE DAILY (QD)
  3. CIMZIA [Suspect]
     Active Substance: CERTOLIZUMAB PEGOL
     Dosage: 200 MILLIGRAM, EV 2 WEEKS(QOW)
     Dates: start: 20161117, end: 201806
  4. HCQ [Concomitant]
     Active Substance: HYDROXYCHLOROQUINE SULFATE
     Indication: PNEUMOCYSTIS JIROVECII PNEUMONIA
     Dosage: UNK, ONCE DAILY (QD)

REACTIONS (4)
  - Adverse event [Unknown]
  - Off label use [Unknown]
  - Cholangiocarcinoma [Recovering/Resolving]
  - Hepatitis E [Recovered/Resolved]

NARRATIVE: CASE EVENT DATE: 20180806
